FAERS Safety Report 18361986 (Version 1)
Quarter: 2020Q4

REPORT INFORMATION
  Report Type: Report from Study
  Country: US (occurrence: US)
  Receive Date: 20201008
  Receipt Date: 20201008
  Transmission Date: 20210114
  Serious: Yes (Other)
  Sender: FDA-Public Use
  Company Number: US-BAUSCH-BL-2020-028994

PATIENT
  Age: 52 Year
  Sex: Female
  Weight: 63.7 kg

DRUGS (9)
  1. FOLVITE [Concomitant]
     Active Substance: FOLIC ACID
     Indication: PRODUCT USED FOR UNKNOWN INDICATION
     Route: 048
     Dates: start: 20200706
  2. VANCOCIN [Concomitant]
     Active Substance: VANCOMYCIN HYDROCHLORIDE
     Indication: CLOSTRIDIUM DIFFICILE COLITIS
     Dosage: FOR 14 DAYS
     Route: 048
     Dates: start: 20200915
  3. ALDACTONE [Concomitant]
     Active Substance: SPIRONOLACTONE
     Indication: PRODUCT USED FOR UNKNOWN INDICATION
     Route: 048
     Dates: start: 20200915
  4. LASIX [Concomitant]
     Active Substance: FUROSEMIDE
     Indication: PRODUCT USED FOR UNKNOWN INDICATION
     Route: 048
     Dates: start: 20200915
  5. PROTONIX [Concomitant]
     Active Substance: PANTOPRAZOLE SODIUM
     Indication: PRODUCT USED FOR UNKNOWN INDICATION
     Dosage: BEFORE BREAKFAST
     Route: 048
     Dates: start: 20200706
  6. XIFAXAN [Suspect]
     Active Substance: RIFAXIMIN
     Indication: CEREBRAL DISORDER
     Route: 048
     Dates: start: 20200914
  7. XIFAXAN [Suspect]
     Active Substance: RIFAXIMIN
     Indication: LIVER DISORDER
  8. CHRONULAC [Concomitant]
     Active Substance: LACTULOSE
     Indication: PRODUCT USED FOR UNKNOWN INDICATION
     Dosage: STRENGTH: 10 GRAM/15 ML SOLUTION
     Route: 048
     Dates: start: 20200914
  9. REGLAN [Concomitant]
     Active Substance: METOCLOPRAMIDE HYDROCHLORIDE
     Indication: GASTROOESOPHAGEAL REFLUX DISEASE
     Route: 048
     Dates: start: 20200706

REACTIONS (2)
  - Body height decreased [Unknown]
  - Paracentesis [Unknown]

NARRATIVE: CASE EVENT DATE: 20200917
